FAERS Safety Report 15454147 (Version 2)
Quarter: 2019Q1

REPORT INFORMATION
  Report Type: Report from Study
  Country: None (occurrence: US)
  Receive Date: 20181002
  Receipt Date: 20190128
  Transmission Date: 20190417
  Serious: Yes (Other)
  Sender: FDA-Public Use
  Company Number: US-ABBVIE-18K-163-2448412-00

PATIENT
  Age: 79 Year
  Sex: Female
  Weight: 62.65 kg

DRUGS (11)
  1. GLUCOSAMINE [Concomitant]
     Active Substance: GLUCOSAMINE
     Indication: ARTHROPATHY
  2. SYNTHROID [Concomitant]
     Active Substance: LEVOTHYROXINE SODIUM
     Indication: EXPOSURE TO RADIATION
  3. HUMIRA [Suspect]
     Active Substance: ADALIMUMAB
     Indication: PSORIASIS
     Route: 058
     Dates: start: 201705
  4. CHONDROITIN [Concomitant]
     Active Substance: CHONDROITIN
     Indication: ARTHROPATHY
  5. DILTIAZEM. [Concomitant]
     Active Substance: DILTIAZEM
     Indication: CARDIAC DISORDER
  6. PRAVASTATIN. [Concomitant]
     Active Substance: PRAVASTATIN
     Indication: BLOOD CHOLESTEROL INCREASED
  7. VITAMIN D [Concomitant]
     Active Substance: CHOLECALCIFEROL
     Indication: SUPPLEMENTATION THERAPY
  8. LOSARTAN. [Concomitant]
     Active Substance: LOSARTAN
     Indication: HYPERTENSION
  9. ASATEX [Concomitant]
     Indication: PRODUCT USED FOR UNKNOWN INDICATION
  10. ASPIRIN. [Concomitant]
     Active Substance: ASPIRIN
     Indication: CARDIAC DISORDER
  11. CALCIUM [Concomitant]
     Active Substance: CALCIUM
     Indication: SUPPLEMENTATION THERAPY

REACTIONS (7)
  - Post procedural haemorrhage [Recovering/Resolving]
  - Nail disorder [Recovered/Resolved]
  - Limb injury [Not Recovered/Not Resolved]
  - Fall [Recovered/Resolved]
  - Musculoskeletal pain [Not Recovered/Not Resolved]
  - Psoriasis [Unknown]
  - Arthralgia [Recovering/Resolving]

NARRATIVE: CASE EVENT DATE: 2017
